FAERS Safety Report 9191300 (Version 1)
Quarter: 2013Q1

REPORT INFORMATION
  Report Type: Spontaneous
  Country: US (occurrence: US)
  Receive Date: 20130326
  Receipt Date: 20130326
  Transmission Date: 20140127
  Serious: Yes (Hospitalization, Other)
  Sender: FDA-Public Use
  Company Number: US-BRISTOL-MYERS SQUIBB COMPANY-18695650

PATIENT
  Age: 84 Year
  Sex: Female
  Weight: 65.76 kg

DRUGS (7)
  1. COUMADIN [Suspect]
     Indication: THROMBOSIS PROPHYLAXIS
     Route: 048
     Dates: start: 20000402, end: 20120325
  2. ATENOLOL [Concomitant]
     Dates: start: 19980707
  3. FOLIC ACID [Concomitant]
     Dates: start: 19991214
  4. CALCIUM [Concomitant]
     Dates: start: 1999
  5. VITAMIN D [Concomitant]
     Dates: start: 1999
  6. ACTONEL [Concomitant]
     Dates: start: 200403
  7. PRAVACHOL [Concomitant]
     Dates: start: 2002

REACTIONS (3)
  - Myelofibrosis [Unknown]
  - Anaemia [Unknown]
  - Epistaxis [Recovered/Resolved]
